FAERS Safety Report 6300150-9 (Version None)
Quarter: 2009Q3

REPORT INFORMATION
  Report Type: 
  Country: None (occurrence: None)
  Receive Date: 20090806
  Receipt Date: 20090729
  Transmission Date: 20100115
  Serious: Yes (Hospitalization)
  Sender: FDA-Public Use
  Company Number: PHHO2006MX03604

PATIENT
  Age: 66 Year
  Sex: Female

DRUGS (2)
  1. DIOVAN HCT [Suspect]
     Indication: HYPERTENSION
     Dosage: 160MG/12.5MG
     Route: 048
     Dates: start: 20051202, end: 20060220
  2. DIOVAN HCT [Suspect]
     Dosage: UNK
     Dates: start: 20060301

REACTIONS (1)
  - GALLBLADDER OPERATION [None]
